FAERS Safety Report 7730339-3 (Version None)
Quarter: 2011Q3

REPORT INFORMATION
  Report Type: 
  Country: None (occurrence: None)
  Receive Date: 20110906
  Receipt Date: 20110824
  Transmission Date: 20111222
  Serious: Yes (Hospitalization)
  Sender: FDA-Public Use
  Company Number: US-ELI_LILLY_AND_COMPANY-US201108008354

PATIENT
  Sex: Female

DRUGS (6)
  1. VITAMIN D [Concomitant]
  2. FORTEO [Suspect]
     Indication: OSTEOPOROSIS
     Dosage: 20 UG, QD
     Dates: start: 20110810, end: 20110810
  3. ASPIRIN [Concomitant]
  4. VITAMIN TAB [Concomitant]
  5. CITRACAL [Concomitant]
  6. METOPROLOL [Concomitant]

REACTIONS (3)
  - CHEST PAIN [None]
  - ANXIETY [None]
  - DYSPNOEA [None]
